FAERS Safety Report 24286734 (Version 2)
Quarter: 2024Q3

REPORT INFORMATION
  Report Type: Report from Study
  Country: HN (occurrence: HN)
  Receive Date: 20240905
  Receipt Date: 20240911
  Transmission Date: 20241017
  Serious: Yes (Other)
  Sender: REGENERON
  Company Number: HN-BAYER-2024A126809

PATIENT
  Sex: Female

DRUGS (7)
  1. EYLEA [Suspect]
     Active Substance: AFLIBERCEPT
     Indication: Diabetic retinal oedema
     Dosage: 2 MG, ONCE (BOTH EYE), SOLUTION FOR INJECTION, 40 MG/ML
     Route: 031
     Dates: start: 20230603, end: 20230603
  2. EYLEA [Suspect]
     Active Substance: AFLIBERCEPT
     Dosage: 2 MG, ONCE (BOTH EYE), SOLUTION FOR INJECTION, 40 MG/ML
     Route: 031
     Dates: start: 20230703, end: 20230703
  3. EYLEA [Suspect]
     Active Substance: AFLIBERCEPT
     Dosage: 2 MG, ONCE (BOTH EYE), SOLUTION FOR INJECTION, 40 MG/ML
     Route: 031
     Dates: start: 20230803, end: 20230803
  4. EYLEA [Suspect]
     Active Substance: AFLIBERCEPT
     Dosage: 2 MG, ONCE (BOTH EYE), SOLUTION FOR INJECTION, 40 MG/ML
     Route: 031
     Dates: start: 20230904, end: 20230904
  5. EYLEA [Suspect]
     Active Substance: AFLIBERCEPT
     Dosage: 2 MG, ONCE (BOTH EYE), SOLUTION FOR INJECTION, 40 MG/ML
     Route: 031
     Dates: start: 20231003, end: 20231003
  6. EYLEA [Suspect]
     Active Substance: AFLIBERCEPT
     Dosage: 2 MG, ONCE (BOTH EYE), SOLUTION FOR INJECTION, 40 MG/ML
     Route: 031
     Dates: start: 20231103, end: 20231103
  7. EYLEA [Suspect]
     Active Substance: AFLIBERCEPT
     Dosage: 2 MG, ONCE (BOTH EYE), SOLUTION FOR INJECTION, 40 MG/ML
     Route: 031
     Dates: start: 20240715

REACTIONS (1)
  - Cataract operation [Unknown]

NARRATIVE: CASE EVENT DATE: 20240827
